FAERS Safety Report 4619075-X (Version None)
Quarter: 2005Q1

REPORT INFORMATION
  Report Type: 
  Country: None (occurrence: None)
  Receive Date: 20050318
  Receipt Date: 20050318
  Transmission Date: 20050727
  Serious: Yes (Hospitalization)
  Sender: FDA-Public Use
  Company Number: None

PATIENT
  Sex: Male
  Weight: 65.318 kg

DRUGS (7)
  1. SEROQUEL [Suspect]
     Indication: MENTAL DISORDER
     Dosage: PO [A FEW DAYS PRIOR]
     Route: 048
  2. B12 [Concomitant]
  3. ISOSORBIDE [Concomitant]
  4. REMINYL [Concomitant]
  5. COUMADIN [Concomitant]
  6. DIGOXIN [Concomitant]
  7. CARDIZEM [Concomitant]

REACTIONS (1)
  - DIZZINESS [None]
